FAERS Safety Report 4720452-7 (Version None)
Quarter: 2005Q3

REPORT INFORMATION
  Report Type: 
  Country: None (occurrence: None)
  Receive Date: 20050721
  Receipt Date: 20050712
  Transmission Date: 20060218
  Serious: Yes (Other)
  Sender: FDA-Public Use
  Company Number: PHBS2005TR09927

PATIENT
  Age: 72 Year
  Sex: Female

DRUGS (4)
  1. ZOMETA [Suspect]
     Indication: BREAST CANCER METASTATIC
     Dosage: 4 MG, QMO
     Route: 042
     Dates: start: 20020101, end: 20050101
  2. TAMOXIFEN CITRATE [Concomitant]
  3. ANTIDIABETICS [Concomitant]
  4. THYROID PREPARATIONS [Concomitant]

REACTIONS (3)
  - ASEPTIC NECROSIS BONE [None]
  - BLOOD CREATININE INCREASED [None]
  - TOOTH EXTRACTION [None]
